FAERS Safety Report 5142602-3 (Version None)
Quarter: 2006Q4

REPORT INFORMATION
  Report Type: 
  Country: None (occurrence: None)
  Receive Date: 20061027
  Receipt Date: 20061016
  Transmission Date: 20070319
  Serious: Yes (Hospitalization)
  Sender: FDA-Public Use
  Company Number: MEDI-0005037

PATIENT
  Age: 10 Month
  Sex: Female

DRUGS (1)
  1. SYNAGIS [Suspect]
     Dates: start: 20061013, end: 20061013

REACTIONS (3)
  - GASTROENTERITIS [None]
  - HYPOGLYCAEMIA [None]
  - ORAL INTAKE REDUCED [None]
